FAERS Safety Report 10066183 (Version 1)
Quarter: 2014Q2

REPORT INFORMATION
  Report Type: Spontaneous
  Country: US (occurrence: US)
  Receive Date: 20140408
  Receipt Date: 20140408
  Transmission Date: 20141212
  Serious: No
  Sender: FDA-Public Use
  Company Number: US-PFIZER INC-2014097341

PATIENT
  Sex: Female

DRUGS (2)
  1. PRISTIQ [Suspect]
     Dosage: 150 MG, DAILY
  2. FETZIMA [Suspect]
     Dosage: UNK

REACTIONS (3)
  - Psychomotor retardation [Recovered/Resolved]
  - Musculoskeletal stiffness [Unknown]
  - Movement disorder [Unknown]
